FAERS Safety Report 7361402-7 (Version None)
Quarter: 2011Q1

REPORT INFORMATION
  Report Type: 
  Country: None (occurrence: None)
  Receive Date: 20110318
  Receipt Date: 20110315
  Transmission Date: 20110831
  Serious: Yes (Hospitalization)
  Sender: FDA-Public Use
  Company Number: US-ELI_LILLY_AND_COMPANY-US201010006223

PATIENT
  Sex: Female
  Weight: 43.537 kg

DRUGS (13)
  1. VITAMIN B-12 [Concomitant]
     Indication: PREMEDICATION
     Dosage: UNK, UNK
     Dates: start: 20100824
  2. NYSTATIN [Concomitant]
     Indication: MUCOSAL INFLAMMATION
  3. ZOCOR [Concomitant]
     Indication: HYPERLIPIDAEMIA
  4. PREMARIN [Concomitant]
     Indication: HORMONE REPLACEMENT THERAPY
  5. DEXAMETHASONE [Concomitant]
     Indication: PREMEDICATION
  6. PEMETREXED [Suspect]
     Indication: NON-SMALL CELL LUNG CANCER STAGE IV
     Dosage: 500 MG/M2, DAY 1 EVERY 21 DAYS
     Route: 042
     Dates: start: 20100903, end: 20100924
  7. ADVAIR DISKUS 100/50 [Concomitant]
     Indication: ASTHMA
  8. CARBOPLATIN [Suspect]
     Indication: NON-SMALL CELL LUNG CANCER STAGE IV
     Dosage: 6 D/F, DAY 1 EVERY 21 DAYS
     Route: 042
     Dates: start: 20100903, end: 20100924
  9. MEGACE [Concomitant]
     Indication: DECREASED APPETITE
  10. ZOMETA [Concomitant]
     Indication: METASTASES TO BONE
  11. ZOLOFT [Concomitant]
     Indication: DEPRESSION
  12. BEVACIZUMAB [Suspect]
     Indication: NON-SMALL CELL LUNG CANCER STAGE IV
     Dosage: 15 MG/KG, DAY 1 EVERY 21 DAYS
     Route: 042
     Dates: start: 20100903, end: 20100924
  13. FOLIC ACID [Concomitant]
     Indication: PREMEDICATION
     Dosage: UNK, UNK
     Dates: start: 20100824

REACTIONS (1)
  - PNEUMOTHORAX [None]
